FAERS Safety Report 6409370-6 (Version None)
Quarter: 2009Q4

REPORT INFORMATION
  Report Type: 
  Country: None (occurrence: None)
  Receive Date: 20091021
  Receipt Date: 20091013
  Transmission Date: 20100525
  Serious: Yes (Hospitalization)
  Sender: FDA-Public Use
  Company Number: JP-SANOFI-SYNTHELABO-F01200900997

PATIENT
  Sex: Male
  Weight: 50.3 kg

DRUGS (2)
  1. TS-1 [Suspect]
     Indication: PANCREATIC CARCINOMA
     Route: 048
  2. ELPLAT [Suspect]
     Indication: PANCREATIC CARCINOMA
     Dosage: 148 MG
     Route: 041

REACTIONS (2)
  - ALTERED STATE OF CONSCIOUSNESS [None]
  - URINARY INCONTINENCE [None]
